FAERS Safety Report 7333869-1 (Version None)
Quarter: 2011Q1

REPORT INFORMATION
  Report Type: 
  Country: None (occurrence: None)
  Receive Date: 20110307
  Receipt Date: 20110222
  Transmission Date: 20110831
  Serious: Yes (Hospitalization)
  Sender: FDA-Public Use
  Company Number: ES-BIOGENIDEC-2011BI003086

PATIENT
  Sex: Female

DRUGS (5)
  1. TYSABRI [Suspect]
     Indication: MULTIPLE SCLEROSIS
     Route: 042
     Dates: start: 20091021, end: 20101223
  2. SUTRIL [Concomitant]
  3. DOBUPAL [Concomitant]
  4. BLOKIUM [Concomitant]
  5. ZYPREXA [Concomitant]

REACTIONS (1)
  - CHOLECYSTITIS INFECTIVE [None]
